FAERS Safety Report 6552635-8 (Version None)
Quarter: 2010Q1

REPORT INFORMATION
  Report Type: 
  Country: None (occurrence: None)
  Receive Date: 20100126
  Receipt Date: 20100121
  Transmission Date: 20100710
  Serious: Yes (Other)
  Sender: FDA-Public Use
  Company Number: A0840728A

PATIENT
  Age: 26 Year
  Sex: Female

DRUGS (4)
  1. LAMICTAL [Suspect]
     Indication: EPILEPSY
     Dosage: 300MG TWICE PER DAY
     Route: 048
     Dates: start: 20010101
  2. ZONEGRAN [Concomitant]
  3. ANTIBIOTICS [Concomitant]
  4. VITAMINS [Concomitant]

REACTIONS (6)
  - ANORGASMIA [None]
  - CONVULSION [None]
  - DRUG INEFFECTIVE [None]
  - NIPPLE DISORDER [None]
  - TREATMENT NONCOMPLIANCE [None]
  - VAGINAL DISORDER [None]
